FAERS Safety Report 24188701 (Version 1)
Quarter: 2024Q3

REPORT INFORMATION
  Report Type: Spontaneous
  Country: US (occurrence: US)
  Receive Date: 20240808
  Receipt Date: 20240808
  Transmission Date: 20241016
  Serious: No
  Sender: OTSUKA
  Company Number: US-OTSUKA-2024_006466

PATIENT
  Age: 76 Year
  Sex: Female

DRUGS (4)
  1. ABILIFY [Suspect]
     Active Substance: ARIPIPRAZOLE
     Indication: Product used for unknown indication
     Dosage: UNK
     Route: 065
     Dates: start: 202207
  2. OFEV [Suspect]
     Active Substance: NINTEDANIB
     Indication: Idiopathic pulmonary fibrosis
     Dosage: 200 MG (100 MG), 1 IN 12 HOUR
     Route: 048
     Dates: start: 20210215
  3. OFEV [Suspect]
     Active Substance: NINTEDANIB
     Dosage: 300 MG, QD
     Route: 048
     Dates: start: 20210215
  4. AMLODIPINE [Concomitant]
     Active Substance: AMLODIPINE BESYLATE
     Indication: Product used for unknown indication
     Dosage: UNK
     Route: 065

REACTIONS (14)
  - Wrist fracture [Unknown]
  - Lung disorder [Unknown]
  - Upper-airway cough syndrome [Unknown]
  - Taste disorder [Unknown]
  - Dysgeusia [Unknown]
  - Blood cholesterol increased [Unknown]
  - Cough [Unknown]
  - Depression [Unknown]
  - Diarrhoea [Not Recovered/Not Resolved]
  - Diarrhoea [Recovered/Resolved]
  - Fatigue [Unknown]
  - Insomnia [Unknown]
  - Nausea [Not Recovered/Not Resolved]
  - Drug ineffective [Unknown]

NARRATIVE: CASE EVENT DATE: 20220701
